FAERS Safety Report 23855588 (Version 2)
Quarter: 2025Q2

REPORT INFORMATION
  Report Type: Spontaneous
  Country: US (occurrence: US)
  Receive Date: 20240514
  Receipt Date: 20250423
  Transmission Date: 20250717
  Serious: No
  Sender: SANOFI AVENTIS
  Company Number: US-SA-SAC20240508000509

PATIENT
  Age: 52 Year
  Sex: Female

DRUGS (2)
  1. DUPIXENT [Suspect]
     Active Substance: DUPILUMAB
     Indication: Asthma
     Route: 058
     Dates: start: 202403, end: 202403
  2. DUPIXENT [Suspect]
     Active Substance: DUPILUMAB
     Indication: Dermatitis atopic
     Dosage: 300 MG, QOW
     Route: 058
     Dates: start: 2024

REACTIONS (3)
  - Weight increased [Unknown]
  - Rash erythematous [Not Recovered/Not Resolved]
  - Rash pruritic [Unknown]

NARRATIVE: CASE EVENT DATE: 20240101
